FAERS Safety Report 16368074 (Version 2)
Quarter: 2019Q3

REPORT INFORMATION
  Report Type: Spontaneous
  Country: US (occurrence: US)
  Receive Date: 20190529
  Receipt Date: 20190719
  Transmission Date: 20191004
  Serious: No
  Sender: FDA-Public Use
  Company Number: US-SHIRE-US201917401

PATIENT
  Sex: Male
  Weight: 83.9 kg

DRUGS (1)
  1. XIIDRA [Suspect]
     Active Substance: LIFITEGRAST
     Indication: DRY EYE
     Dosage: 1 DROP, 2X/DAY:BID
     Route: 047

REACTIONS (2)
  - Instillation site reaction [Recovered/Resolved]
  - Vision blurred [Recovered/Resolved]
